FAERS Safety Report 8371440-3 (Version None)
Quarter: 2012Q2

REPORT INFORMATION
  Report Type: 
  Country: None (occurrence: None)
  Receive Date: 20120518
  Receipt Date: 20120509
  Transmission Date: 20120825
  Serious: Yes (Hospitalization, Other)
  Sender: FDA-Public Use
  Company Number: US-ASTRAZENECA-2012SE30283

PATIENT
  Age: 41 Year
  Sex: Female
  Weight: 50.8 kg

DRUGS (16)
  1. SEROQUEL XR [Suspect]
     Route: 048
  2. SEROQUEL XR [Suspect]
     Indication: BIPOLAR DISORDER
     Route: 048
  3. SEROQUEL XR [Suspect]
     Route: 048
  4. SEROQUEL XR [Suspect]
     Route: 048
  5. SEROQUEL XR [Suspect]
     Route: 048
  6. KLONOPIN [Concomitant]
     Indication: ANXIETY
  7. ADVAIR DISKUS 100/50 [Concomitant]
  8. SEROQUEL XR [Suspect]
     Route: 048
  9. PROAIR HFA [Concomitant]
  10. DORYX [Concomitant]
  11. SEROQUEL XR [Suspect]
     Indication: DEPRESSION
     Route: 048
  12. SEROQUEL XR [Suspect]
     Route: 048
  13. SEROQUEL XR [Suspect]
     Route: 048
  14. SEROQUEL XR [Suspect]
     Route: 048
  15. SEROQUEL XR [Suspect]
     Route: 048
  16. SEROQUEL XR [Suspect]
     Indication: ANXIETY
     Route: 048

REACTIONS (19)
  - RIB FRACTURE [None]
  - FATIGUE [None]
  - VOMITING [None]
  - BEDRIDDEN [None]
  - MANIA [None]
  - TREMOR [None]
  - RENAL CANCER [None]
  - ANXIETY [None]
  - MEMORY IMPAIRMENT [None]
  - MALAISE [None]
  - FEELING ABNORMAL [None]
  - DRUG DOSE OMISSION [None]
  - NAUSEA [None]
  - CRYING [None]
  - DEPRESSION [None]
  - ACTIVITIES OF DAILY LIVING IMPAIRED [None]
  - VISUAL IMPAIRMENT [None]
  - INSOMNIA [None]
  - INTENTIONAL DRUG MISUSE [None]
